FAERS Safety Report 9363882 (Version 3)
Quarter: 2013Q3

REPORT INFORMATION
  Report Type: Report from Study
  Country: CH (occurrence: CH)
  Receive Date: 20130624
  Receipt Date: 20130930
  Transmission Date: 20140515
  Serious: Yes (Life-Threatening)
  Sender: FDA-Public Use
  Company Number: CH-CELGENEUS-151-21880-13054085

PATIENT
  Age: 70 Year
  Sex: Female
  Weight: 87.7 kg

DRUGS (16)
  1. REVLIMID [Suspect]
     Indication: ACUTE MYELOID LEUKAEMIA
     Route: 048
     Dates: start: 20130525, end: 20130614
  2. CYTARABINE [Suspect]
     Indication: ACUTE MYELOID LEUKAEMIA
     Dosage: 1720 MILLIGRAM
     Route: 041
     Dates: start: 20130525, end: 20130526
  3. TORASEMID [Concomitant]
     Indication: POLYURIA
     Dosage: 20 MILLIGRAM
     Route: 048
     Dates: start: 20130526
  4. LMWH [Concomitant]
     Indication: THROMBOSIS PROPHYLAXIS
     Dosage: 5000 IU (INTERNATIONAL UNIT)
     Route: 058
     Dates: start: 20130525
  5. MEPHAMESON [Concomitant]
     Indication: ANTIEMETIC SUPPORTIVE CARE
     Dosage: 24 MILLIGRAM
     Route: 041
     Dates: start: 20130525, end: 20130530
  6. ONDANSETRON [Concomitant]
     Indication: ANTIEMETIC SUPPORTIVE CARE
     Dosage: 24 MILLIGRAM
     Route: 041
     Dates: start: 20130526, end: 20130531
  7. AMPHOTERICIN [Concomitant]
     Indication: ANTIFUNGAL PROPHYLAXIS
     Route: 048
     Dates: start: 20130525, end: 20130531
  8. ESOMEP [Concomitant]
     Indication: PROPHYLAXIS
     Dosage: 40 MILLIGRAM
     Route: 048
     Dates: start: 20130525
  9. NACL [Concomitant]
     Indication: FLUID REPLACEMENT
     Dosage: 9600 MILLILITER
     Route: 065
     Dates: start: 20130525, end: 20130531
  10. NACL [Concomitant]
     Dosage: 2000 MILLILITER
     Route: 065
     Dates: start: 20130526, end: 20130531
  11. MAXIDEX [Concomitant]
     Indication: PRODUCT USED FOR UNKNOWN INDICATION
     Route: 047
     Dates: start: 20130525, end: 20130602
  12. VITAMIN A [Concomitant]
     Indication: PRODUCT USED FOR UNKNOWN INDICATION
     Route: 047
     Dates: start: 20130525, end: 20130602
  13. PASPERTIN [Concomitant]
     Indication: ANTIEMETIC SUPPORTIVE CARE
     Dosage: 60 MILLIGRAM
     Route: 048
     Dates: start: 20130525
  14. RED BLOOD CELLS [Concomitant]
     Indication: PRODUCT USED FOR UNKNOWN INDICATION
     Route: 050
     Dates: start: 20130415
  15. PLATELETS [Concomitant]
     Indication: PRODUCT USED FOR UNKNOWN INDICATION
     Route: 050
     Dates: start: 20130415
  16. TAVANIC [Concomitant]
     Indication: ANTIBIOTIC PROPHYLAXIS
     Dosage: 500 MILLIGRAM
     Route: 065
     Dates: start: 20130525

REACTIONS (1)
  - Acute myocardial infarction [Recovered/Resolved with Sequelae]
